FAERS Safety Report 8382142-1 (Version None)
Quarter: 2012Q2

REPORT INFORMATION
  Report Type: 
  Country: None (occurrence: None)
  Receive Date: 20120524
  Receipt Date: 20120517
  Transmission Date: 20120825
  Serious: Yes (Other)
  Sender: FDA-Public Use
  Company Number: BR-PFIZER INC-2012120335

PATIENT
  Age: 84 Year
  Sex: Female

DRUGS (7)
  1. LIPITOR [Concomitant]
     Indication: BLOOD CHOLESTEROL INCREASED
  2. XALATAN [Suspect]
     Indication: GLAUCOMA
     Dosage: UNK
     Route: 047
     Dates: start: 20061125
  3. PROPAFENONE HCL [Concomitant]
     Indication: CARDIAC DISORDER
     Dosage: UNK
     Dates: start: 20020501
  4. LIPITOR [Concomitant]
     Indication: PERIPHERAL VASCULAR DISORDER
     Dosage: UNK
     Dates: start: 20080517
  5. XALATAN [Suspect]
     Indication: RETINAL DISORDER
  6. XALATAN [Suspect]
     Indication: MACULOPATHY
  7. PROPAFENONE HCL [Concomitant]
     Indication: MYOCARDIAL INFARCTION

REACTIONS (3)
  - MACULOPATHY [None]
  - BLOOD CHOLESTEROL ABNORMAL [None]
  - PERIPHERAL VASCULAR DISORDER [None]
